FAERS Safety Report 19513969 (Version 1)
Quarter: 2021Q3

REPORT INFORMATION
  Report Type: Other
  Country: LK (occurrence: LK)
  Receive Date: 20210709
  Receipt Date: 20210709
  Transmission Date: 20211014
  Serious: Yes (Life-Threatening)
  Sender: FDA-Public Use
  Company Number: LK-B.BRAUN MEDICAL INC.-2113666

PATIENT
  Age: 56 Year
  Sex: Male

DRUGS (1)
  1. POTASSIUM CHLORIDE FOR INJECTION CONCENTRATE USP 0264?1940?20 (ANDA 08 [Suspect]
     Active Substance: POTASSIUM CHLORIDE
     Indication: HYPOKALAEMIA
     Route: 042

REACTIONS (1)
  - Drug ineffective [None]
